FAERS Safety Report 17673361 (Version 2)
Quarter: 2020Q2

REPORT INFORMATION
  Report Type: Spontaneous
  Country: BE (occurrence: BE)
  Receive Date: 20200415
  Receipt Date: 20200527
  Transmission Date: 20200713
  Serious: No
  Sender: FDA-Public Use
  Company Number: BE-JNJFOC-20200404320

PATIENT
  Age: 46 Year
  Sex: Female
  Weight: 78 kg

DRUGS (1)
  1. DUROGESIC [Suspect]
     Active Substance: FENTANYL
     Indication: PAIN
     Dosage: STRENGTH: 50 MCG/H
     Route: 062
     Dates: start: 20200331

REACTIONS (2)
  - Product adhesion issue [Unknown]
  - Underdose [Unknown]

NARRATIVE: CASE EVENT DATE: 20200331
